FAERS Safety Report 15417109 (Version 1)
Quarter: 2018Q3

REPORT INFORMATION
  Report Type: Report from Study
  Country: None (occurrence: TR)
  Receive Date: 20180924
  Receipt Date: 20180924
  Transmission Date: 20181010
  Serious: Yes (Other)
  Sender: FDA-Public Use
  Company Number: TR-ABBVIE-18K-161-2489903-00

PATIENT
  Age: 13 Year
  Sex: Female
  Weight: 71 kg

DRUGS (7)
  1. AZARGA [Concomitant]
     Active Substance: BRINZOLAMIDE\TIMOLOL MALEATE
     Indication: UVEITIS
     Route: 047
     Dates: start: 201712
  2. PRED FORTE [Concomitant]
     Active Substance: PREDNISOLONE ACETATE
     Indication: UVEITIS
     Route: 047
     Dates: start: 201712
  3. MYDFRIN [Concomitant]
     Active Substance: PHENYLEPHRINE HYDROCHLORIDE
     Indication: UVEITIS
     Route: 047
     Dates: start: 201712
  4. HUMIRA [Suspect]
     Active Substance: ADALIMUMAB
     Indication: UVEITIS
     Route: 058
     Dates: start: 201803, end: 201809
  5. IMURAN [Concomitant]
     Active Substance: AZATHIOPRINE
     Indication: UVEITIS
     Route: 048
     Dates: start: 201801
  6. DELTACORTRIL [Concomitant]
     Active Substance: PREDNISOLONE
     Indication: UVEITIS
     Dosage: 1X1/2
     Route: 048
     Dates: start: 201801
  7. TROPAMID [Concomitant]
     Active Substance: TROPICAMIDE
     Indication: UVEITIS
     Route: 047
     Dates: start: 201712

REACTIONS (2)
  - Localised oedema [Not Recovered/Not Resolved]
  - Intracranial mass [Not Recovered/Not Resolved]

NARRATIVE: CASE EVENT DATE: 20180828
